FAERS Safety Report 6707979-3 (Version None)
Quarter: 2010Q2

REPORT INFORMATION
  Report Type: 
  Country: None (occurrence: None)
  Receive Date: 20100428
  Receipt Date: 20100423
  Transmission Date: 20101027
  Serious: Yes (Other)
  Sender: FDA-Public Use
  Company Number: COM10-0540

PATIENT
  Sex: Male

DRUGS (7)
  1. CLONAZEPAM [Suspect]
  2. FLUDROCORTISONE [Concomitant]
  3. SYNTHROID [Concomitant]
  4. DEPO-PROVERA [Concomitant]
  5. POTASSIUM CHLORIDE [Concomitant]
  6. VITAMIN D [Concomitant]
  7. AZITHROMYCIN [Concomitant]

REACTIONS (2)
  - DRUG INEFFECTIVE [None]
  - INAPPROPRIATE SCHEDULE OF DRUG ADMINISTRATION [None]
